FAERS Safety Report 7862853-4 (Version None)
Quarter: 2011Q4

REPORT INFORMATION
  Report Type: 
  Country: None (occurrence: None)
  Receive Date: 20111026
  Receipt Date: 20111011
  Transmission Date: 20120403
  Serious: Yes (Other)
  Sender: FDA-Public Use
  Company Number: 1000021853

PATIENT
  Age: 46 Year
  Sex: Female
  Weight: 74 kg

DRUGS (3)
  1. ESCITALOPRAM [Suspect]
     Indication: DEPRESSION
  2. ENBREL [Suspect]
     Indication: SPONDYLITIS
     Dosage: 7.1429 MG (50 MG, 1 IN 1 WK);
     Dates: start: 20080101
  3. PAROXETINE HCL [Suspect]

REACTIONS (5)
  - SUICIDAL IDEATION [None]
  - CRYING [None]
  - DRUG INTERACTION [None]
  - CONVERSION DISORDER [None]
  - TREMOR [None]
